FAERS Safety Report 17890027 (Version 1)
Quarter: 2020Q2

REPORT INFORMATION
  Report Type: Spontaneous
  Country: CN (occurrence: CN)
  Receive Date: 20200612
  Receipt Date: 20200612
  Transmission Date: 20200714
  Serious: Yes (Other)
  Sender: FDA-Public Use
  Company Number: CN-ASTRAZENECA-2020SE71168

PATIENT
  Age: 57 Year
  Sex: Female

DRUGS (3)
  1. GEFITINIB. [Suspect]
     Active Substance: GEFITINIB
     Indication: LUNG ADENOCARCINOMA
     Dosage: 250 MG ONCE DAILY IN COMBINATION WITH BEVACIZUMAB
     Route: 048
  2. BEVACIZUMAB. [Concomitant]
     Active Substance: BEVACIZUMAB
     Indication: LUNG ADENOCARCINOMA
     Dosage: 15 MG/KG ONCE EVERY 21 DAYS
     Route: 065
  3. GEFITINIB. [Suspect]
     Active Substance: GEFITINIB
     Indication: LUNG ADENOCARCINOMA
     Dosage: 250 MG ONCE DAILY IN COMBINATION WITH PYROTINIB
     Route: 048

REACTIONS (4)
  - Gene mutation [Not Recovered/Not Resolved]
  - Toxicity to various agents [Unknown]
  - Drug resistance [Recovering/Resolving]
  - Malignant neoplasm progression [Unknown]
